FAERS Safety Report 9054270 (Version 2)
Quarter: 2013Q1

REPORT INFORMATION
  Report Type: Spontaneous
  Country: JP (occurrence: JP)
  Receive Date: 20130208
  Receipt Date: 20130214
  Transmission Date: 20140127
  Serious: Yes (Other)
  Sender: FDA-Public Use
  Company Number: JP-GLAXOSMITHKLINE-B0863644A

PATIENT
  Age: 31 None
  Sex: Female

DRUGS (9)
  1. LAMICTAL [Suspect]
     Indication: BIPOLAR DISORDER
     Dosage: 25MG PER DAY
     Route: 048
     Dates: start: 20130122, end: 20130124
  2. SEROQUEL [Concomitant]
     Dosage: 200MG PER DAY
     Route: 048
     Dates: start: 201203
  3. SOLANAX [Concomitant]
     Dosage: .8MG PER DAY
     Route: 048
     Dates: start: 201203
  4. LENDEM D [Concomitant]
     Dosage: .25MG PER DAY
     Route: 048
     Dates: start: 201202
  5. ROHYPNOL [Concomitant]
     Dosage: 1MG PER DAY
     Route: 048
     Dates: start: 201205
  6. GABAPEN [Concomitant]
     Dosage: 200MG PER DAY
     Route: 048
     Dates: start: 20130124
  7. MAGLAX [Concomitant]
     Dosage: 750MG PER DAY
     Route: 048
     Dates: start: 201203
  8. METLIGINE [Concomitant]
     Dosage: 2MG PER DAY
     Route: 048
     Dates: start: 20130117
  9. SELBEX [Concomitant]
     Dosage: 150MG PER DAY
     Route: 048
     Dates: start: 20130118

REACTIONS (1)
  - Myoclonic epilepsy [Recovered/Resolved]
